FAERS Safety Report 9827643 (Version 1)
Quarter: 2014Q1

REPORT INFORMATION
  Report Type: Spontaneous
  Country: KR (occurrence: KR)
  Receive Date: 20140117
  Receipt Date: 20140117
  Transmission Date: 20141002
  Serious: Yes (Other)
  Sender: FDA-Public Use
  Company Number: KR-PFIZER INC-2014011549

PATIENT
  Sex: Male

DRUGS (1)
  1. ACCUPRIL [Suspect]
     Dosage: 2 OF 10MG TABLETS
     Route: 048
     Dates: start: 201311, end: 201312

REACTIONS (4)
  - Blood pressure inadequately controlled [Recovered/Resolved]
  - Angina pectoris [Unknown]
  - Musculoskeletal stiffness [Unknown]
  - Drug ineffective [Recovered/Resolved]
